FAERS Safety Report 4925675-X (Version None)
Quarter: 2006Q1

REPORT INFORMATION
  Report Type: 
  Country: None (occurrence: None)
  Receive Date: 20060228
  Receipt Date: 20050121
  Transmission Date: 20060701
  Serious: No
  Sender: FDA-Public Use
  Company Number: US-GLAXOSMITHKLINE-A0541718A

PATIENT
  Age: 44 Year
  Sex: Female

DRUGS (2)
  1. LAMICTAL [Suspect]
     Indication: PARTIAL SEIZURES
     Dosage: 25MG PER DAY
     Route: 048
     Dates: start: 20040801
  2. MULTI-VITAMIN [Concomitant]

REACTIONS (4)
  - BLISTER [None]
  - EYE SWELLING [None]
  - LYMPHADENOPATHY [None]
  - NECK PAIN [None]
